FAERS Safety Report 5400668-7 (Version None)
Quarter: 2007Q3

REPORT INFORMATION
  Report Type: 
  Country: None (occurrence: None)
  Receive Date: 20070730
  Receipt Date: 20070723
  Transmission Date: 20080115
  Serious: Yes (Other)
  Sender: FDA-Public Use
  Company Number: US-PFIZER INC-2007040987

PATIENT
  Sex: Female

DRUGS (2)
  1. ZYRTEC [Suspect]
  2. AMITIZA [Suspect]

REACTIONS (3)
  - EUPHORIC MOOD [None]
  - ROAD TRAFFIC ACCIDENT [None]
  - THERAPEUTIC RESPONSE UNEXPECTED [None]
